FAERS Safety Report 5626310-8 (Version None)
Quarter: 2008Q1

REPORT INFORMATION
  Report Type: 
  Country: None (occurrence: None)
  Receive Date: 20080213
  Receipt Date: 20080213
  Transmission Date: 20080703
  Serious: Yes (Other)
  Sender: FDA-Public Use
  Company Number: None

PATIENT
  Age: 65 Year
  Sex: Male
  Weight: 84.369 kg

DRUGS (1)
  1. ZETIA [Suspect]
     Indication: BLOOD CHOLESTEROL INCREASED
     Dosage: 10 MG. QD ORAL
     Route: 048

REACTIONS (5)
  - DIARRHOEA [None]
  - FATIGUE [None]
  - FLATULENCE [None]
  - MYALGIA [None]
  - STOMACH DISCOMFORT [None]
